FAERS Safety Report 9493514 (Version 1)
Quarter: 2013Q3

REPORT INFORMATION
  Report Type: Spontaneous
  Country: US (occurrence: US)
  Receive Date: 20130902
  Receipt Date: 20130902
  Transmission Date: 20140515
  Serious: No
  Sender: FDA-Public Use
  Company Number: US-PFIZER INC-2013249300

PATIENT
  Age: 87 Year
  Sex: Female

DRUGS (6)
  1. TETRACYCLINE HCL [Suspect]
     Dosage: UNK
  2. CEFTIN [Suspect]
     Dosage: UNK
  3. INDOMETHACIN [Suspect]
     Dosage: UNK
  4. LEVAQUIN [Suspect]
     Dosage: UNK
  5. TEQUIN [Suspect]
     Dosage: UNK
  6. ZOCOR [Suspect]
     Dosage: UNK

REACTIONS (1)
  - Drug hypersensitivity [Unknown]
